FAERS Safety Report 8553449-X (Version None)
Quarter: 2012Q2

REPORT INFORMATION
  Report Type: 
  Country: None (occurrence: None)
  Receive Date: 20120417
  Receipt Date: 20110223
  Transmission Date: 20120825
  Serious: Yes (Other)
  Sender: FDA-Public Use
  Company Number: 096

PATIENT
  Sex: Male
  Weight: 117.9352 kg

DRUGS (4)
  1. ALEVE [Suspect]
     Dosage: 220MG, TWICE DAILY, ORAL
     Route: 048
     Dates: start: 20110218, end: 20110221
  2. XANAX [Concomitant]
  3. DIOVAN [Concomitant]
  4. TOPROL-XL [Concomitant]

REACTIONS (4)
  - HEADACHE [None]
  - PHARYNGEAL OEDEMA [None]
  - VISION BLURRED [None]
  - NECK PAIN [None]
